FAERS Safety Report 4578447-2 (Version None)
Quarter: 2005Q1

REPORT INFORMATION
  Report Type: 
  Country: None (occurrence: None)
  Receive Date: 20050211
  Receipt Date: 20050201
  Transmission Date: 20050727
  Serious: Yes (Hospitalization)
  Sender: FDA-Public Use
  Company Number: US-ABBOTT-05P-163-0289109-00

PATIENT
  Age: 17 Year
  Sex: Male

DRUGS (2)
  1. DEPAKOTE ER [Suspect]
     Indication: EPILEPSY
     Route: 048
     Dates: end: 20050201
  2. VALPROATE SODIUM [Concomitant]
     Indication: EPILEPSY
     Route: 042
     Dates: start: 20050201

REACTIONS (2)
  - ABDOMINAL PAIN [None]
  - DEHYDRATION [None]
